FAERS Safety Report 7853359-7 (Version None)
Quarter: 2011Q4

REPORT INFORMATION
  Report Type: 
  Country: None (occurrence: None)
  Receive Date: 20111026
  Receipt Date: 20111018
  Transmission Date: 20120403
  Serious: Yes (Hospitalization, Other)
  Sender: FDA-Public Use
  Company Number: GB-JNJFOC-20091201982

PATIENT
  Age: 33 Year
  Sex: Male

DRUGS (2)
  1. RISPERDAL [Suspect]
     Indication: SCHIZOPHRENIA
     Route: 048
  2. SERTRALINE HYDROCHLORIDE [Suspect]
     Indication: SCHIZOPHRENIA

REACTIONS (9)
  - NEUTROPHIL COUNT INCREASED [None]
  - PULMONARY FIBROSIS [None]
  - PNEUMOTHORAX [None]
  - RESPIRATORY FAILURE [None]
  - CREPITATIONS [None]
  - COUGH [None]
  - EOSINOPHILIC PNEUMONIA [None]
  - CLUBBING [None]
  - DYSPNOEA [None]
